FAERS Safety Report 4561147-2 (Version None)
Quarter: 2005Q1

REPORT INFORMATION
  Report Type: 
  Country: None (occurrence: None)
  Receive Date: 20050126
  Receipt Date: 20050118
  Transmission Date: 20050727
  Serious: Yes (Other)
  Sender: FDA-Public Use
  Company Number: CA-AMGEN-US106411

PATIENT
  Sex: Female

DRUGS (15)
  1. ARANESP [Suspect]
     Indication: RENAL FAILURE CHRONIC
     Dates: start: 20040501, end: 20040901
  2. EPREX [Suspect]
     Route: 058
     Dates: start: 20020522, end: 20030822
  3. ALPRAZOLAM [Concomitant]
     Route: 048
     Dates: start: 20020619
  4. CALCIUM CARBONATE [Concomitant]
     Route: 048
     Dates: start: 20020725
  5. CANDESARTAN [Concomitant]
     Route: 048
     Dates: start: 20030411
  6. CLONAZEPAM [Concomitant]
     Route: 048
     Dates: start: 20030618
  7. CYANOCOBALAMIN [Concomitant]
     Route: 048
     Dates: start: 20030506
  8. DOMPERIDONE [Concomitant]
     Route: 048
     Dates: start: 20030108
  9. FOLIC ACID [Concomitant]
     Route: 048
     Dates: start: 20030506
  10. HYDROXYZINE [Concomitant]
     Route: 048
     Dates: start: 20020904
  11. IRON [Concomitant]
     Route: 048
     Dates: start: 20020522
  12. LEVOTHYROXINE SODIUM [Concomitant]
     Route: 048
     Dates: start: 20020522
  13. PYRIDOXINE HCL [Concomitant]
     Route: 048
     Dates: start: 20030618
  14. SEROQUEL [Concomitant]
     Route: 048
     Dates: start: 20030219
  15. PARNATE [Concomitant]
     Route: 048
     Dates: start: 20020619

REACTIONS (2)
  - ANTI-ERYTHROPOIETIN ANTIBODY POSITIVE [None]
  - DRUG INEFFECTIVE [None]
